FAERS Safety Report 25120338 (Version 1)
Quarter: 2025Q1

REPORT INFORMATION
  Report Type: Spontaneous
  Country: US (occurrence: US)
  Receive Date: 20250325
  Receipt Date: 20250325
  Transmission Date: 20250409
  Serious: Yes (Other)
  Sender: DR REDDYS
  Company Number: US-DRL-USA-USA/2025/03/004323

PATIENT
  Age: 38 Year
  Sex: Male

DRUGS (3)
  1. TACROLIMUS [Suspect]
     Active Substance: TACROLIMUS
     Indication: Immunosuppressant drug therapy
  2. DOXYCYCLINE [Suspect]
     Active Substance: DOXYCYCLINE
     Indication: Alopecia scarring
  3. AMOXICILLIN [Concomitant]
     Active Substance: AMOXICILLIN
     Indication: Alopecia scarring

REACTIONS (2)
  - Squamous cell carcinoma [Recovered/Resolved]
  - Drug ineffective for unapproved indication [Unknown]
